FAERS Safety Report 13955527 (Version 1)
Quarter: 2017Q3

REPORT INFORMATION
  Report Type: Spontaneous
  Country: US (occurrence: US)
  Receive Date: 20170911
  Receipt Date: 20170911
  Transmission Date: 20171128
  Serious: No
  Sender: FDA-Public Use
  Company Number: US-LEXICON PHARMACEUTICALS, INC-17-1606-00727

PATIENT
  Age: 60 Year
  Sex: Female

DRUGS (8)
  1. AMLODIPINE AND BENAZEPRIL [Concomitant]
     Active Substance: AMLODIPINE BESYLATE\BENAZEPRIL HYDROCHLORIDE
  2. BUPROPION [Concomitant]
  3. HYDROCHLOROTHIAZIDE [Concomitant]
  4. METFORMIN [Concomitant]
  5. ZANTAC [Concomitant]
  6. VITAMIN C [Concomitant]
  7. TELOTRISTAT ETHYL [Suspect]
     Active Substance: TELOTRISTAT ETHYL
     Indication: CARCINOID SYNDROME
     Route: 048
     Dates: start: 20170728
  8. ESTRADIOL [Concomitant]

REACTIONS (2)
  - Fatigue [Unknown]
  - Nausea [Recovered/Resolved]

NARRATIVE: CASE EVENT DATE: 20170728
